FAERS Safety Report 8862801 (Version 3)
Quarter: 2012Q4

REPORT INFORMATION
  Report Type: Report from Study
  Country: CA (occurrence: CA)
  Receive Date: 20121026
  Receipt Date: 20121107
  Transmission Date: 20130627
  Serious: Yes (Life-Threatening, Hospitalization, Other)
  Sender: FDA-Public Use
  Company Number: CA-JNJFOC-20121013093

PATIENT
  Sex: Female
  Weight: 73 kg

DRUGS (2)
  1. REMICADE [Suspect]
     Indication: ANKYLOSING SPONDYLITIS
     Route: 042
     Dates: start: 20091210, end: 20120802
  2. HIGH BLOOD PRESSURE PILL, NOS [Concomitant]
     Indication: HYPERTENSION
     Route: 048
     Dates: start: 201110

REACTIONS (4)
  - Coronary artery occlusion [Recovered/Resolved]
  - Hypertension [Unknown]
  - Dyspnoea [Recovering/Resolving]
  - Muscular weakness [Recovering/Resolving]
